FAERS Safety Report 7047035-0 (Version None)
Quarter: 2010Q4

REPORT INFORMATION
  Report Type: 
  Country: None (occurrence: None)
  Receive Date: 20101015
  Receipt Date: 20101005
  Transmission Date: 20110411
  Serious: Yes (Other)
  Sender: FDA-Public Use
  Company Number: US-JNJFOC-20100809047

PATIENT
  Sex: Female
  Weight: 59.74 kg

DRUGS (13)
  1. REMICADE [Suspect]
     Indication: RHEUMATOID ARTHRITIS
     Route: 042
  2. REMICADE [Suspect]
     Route: 042
  3. DEPO-MEDROL [Concomitant]
  4. ZYRTEC-D 12 HOUR [Concomitant]
  5. FLONASE [Concomitant]
  6. CLARINEX [Concomitant]
  7. CELEBREX [Concomitant]
  8. CYMBALTA [Concomitant]
  9. ADVAIR DISKUS 100/50 [Concomitant]
  10. ULTRAM [Concomitant]
  11. METHOTREXATE [Concomitant]
  12. PREVACID [Concomitant]
  13. IMURAN [Concomitant]

REACTIONS (4)
  - ABDOMINAL DISCOMFORT [None]
  - CHEST PAIN [None]
  - INFUSION RELATED REACTION [None]
  - PAIN IN JAW [None]
